FAERS Safety Report 10565228 (Version 2)
Quarter: 2014Q4

REPORT INFORMATION
  Report Type: Spontaneous
  Country: IT (occurrence: None)
  Receive Date: 20141103
  Receipt Date: 20141201
  Transmission Date: 20150529
  Serious: Yes (Hospitalization)
  Sender: FDA-Public Use
  Company Number: IT2014K4489SPO

PATIENT
  Age: 79 Year
  Sex: Female

DRUGS (10)
  1. LANSOPRAZOLE WORLD (LANSOPRAZOLE) UNKNOWN [Suspect]
     Active Substance: LANSOPRAZOLE
     Indication: GASTRITIS
     Dosage: 1 DF, PER DAY ORAL
     Route: 048
  2. GLICLAZIDE [Suspect]
     Active Substance: GLICLAZIDE
     Indication: DIABETES MELLITUS
     Dosage: 1 DF, PER DAY, ORAL?
     Route: 048
  3. RAMIPRIL WORLD (RAMIPRIL) UNKNOWN [Suspect]
     Active Substance: RAMIPRIL
     Indication: HYPERTENSION
     Dosage: PER DAY
     Route: 048
  4. LEVETIRACETAM. [Suspect]
     Active Substance: LEVETIRACETAM
     Indication: POST-TRAUMATIC EPILEPSY
     Dosage: 2 DF PER DAY ORAL
     Route: 048
  5. LASIX [Suspect]
     Active Substance: FUROSEMIDE
     Indication: CARDIAC DISORDER
     Dosage: 1 DF, PER DAY, ORAL
     Route: 048
  6. SEREUPIN [Suspect]
     Active Substance: PAROXETINE HYDROCHLORIDE
     Indication: ADJUSTMENT DISORDER WITH DEPRESSED MOOD
     Dosage: 1 DF, PER DAY, ORAL
     Route: 048
  7. BISOPROLOL [Suspect]
     Active Substance: BISOPROLOL
     Indication: ATRIAL FIBRILLATION
     Route: 048
  8. LANOXIN [Suspect]
     Active Substance: DIGOXIN
     Indication: CARDIOMYOPATHY
     Dosage: 1 DF, PER DAY, ORAL
     Route: 048
  9. LANOXIN [Suspect]
     Active Substance: DIGOXIN
     Indication: ATRIAL FIBRILLATION
     Dates: start: 20141001, end: 20141001
  10. TRITTICO [Suspect]
     Active Substance: TRAZODONE HYDROCHLORIDE
     Indication: COGNITIVE DISORDER
     Dosage: PER DAY
     Route: 048

REACTIONS (9)
  - Malaise [None]
  - Cardioactive drug level increased [None]
  - Overdose [None]
  - Fatigue [None]
  - Medication error [None]
  - Drug interaction [None]
  - Atrial fibrillation [None]
  - Bradyphrenia [None]
  - Diabetic metabolic decompensation [None]

NARRATIVE: CASE EVENT DATE: 20141001
